FAERS Safety Report 23310623 (Version 1)
Quarter: 2023Q4

REPORT INFORMATION
  Report Type: Report from Study
  Country: CO (occurrence: None)
  Receive Date: 20231218
  Receipt Date: 20231218
  Transmission Date: 20240109
  Serious: Yes (Hospitalization)
  Sender: FDA-Public Use
  Company Number: 2023A284647

PATIENT
  Age: 63 Year
  Sex: Male

DRUGS (1)
  1. CALQUENCE [Suspect]
     Active Substance: ACALABRUTINIB
     Indication: Acute lymphocytic leukaemia
     Route: 048
     Dates: start: 20230908

REACTIONS (2)
  - Subcutaneous abscess [Recovering/Resolving]
  - Acne [Unknown]

NARRATIVE: CASE EVENT DATE: 20231129
